FAERS Safety Report 4520916-5 (Version None)
Quarter: 2004Q4

REPORT INFORMATION
  Report Type: 
  Country: None (occurrence: None)
  Receive Date: 20041206
  Receipt Date: 20041206
  Transmission Date: 20050328
  Serious: Yes (Other)
  Sender: FDA-Public Use
  Company Number: None

PATIENT
  Age: 13 Year
  Sex: Female
  Weight: 68.0396 kg

DRUGS (6)
  1. LEXAPRO [Suspect]
     Indication: ADOLESCENCE
     Dosage: ORAL
     Route: 048
  2. LEXAPRO [Suspect]
     Indication: PARENT-CHILD PROBLEM
     Dosage: ORAL
     Route: 048
  3. SEROQUEL [Suspect]
     Indication: ABNORMAL BEHAVIOUR
     Dosage: ORAL
     Route: 048
  4. SEROQUEL [Suspect]
     Indication: DEPRESSION
     Dosage: ORAL
     Route: 048
  5. SEROQUEL [Concomitant]
  6. LEXAPRO [Concomitant]

REACTIONS (4)
  - ABNORMAL BEHAVIOUR [None]
  - IMPRISONMENT [None]
  - SELF MUTILATION [None]
  - SUICIDAL IDEATION [None]
